FAERS Safety Report 25756145 (Version 2)
Quarter: 2025Q3

REPORT INFORMATION
  Report Type: Spontaneous
  Country: JP (occurrence: JP)
  Receive Date: 20250903
  Receipt Date: 20250929
  Transmission Date: 20251021
  Serious: Yes (Other)
  Sender: OTSUKA
  Company Number: JP-MMM-Otsuka-IPFHS72N

PATIENT
  Age: 30 Year
  Sex: Female

DRUGS (9)
  1. REXULTI [Suspect]
     Active Substance: BREXPIPRAZOLE
     Indication: Depression
     Dosage: 1 MG/DAY
     Dates: start: 20250520, end: 20250717
  2. REXULTI [Suspect]
     Active Substance: BREXPIPRAZOLE
     Indication: Drug therapy enhancement
     Dosage: 0.5 MG/DAY
     Dates: start: 20250401, end: 20250519
  3. SERTRALINE [Suspect]
     Active Substance: SERTRALINE HYDROCHLORIDE
     Indication: Product used for unknown indication
     Dosage: 75 MG/DAY
     Dates: start: 20211110
  4. SERTRALINE [Suspect]
     Active Substance: SERTRALINE HYDROCHLORIDE
     Dosage: 25 MG/DAY
     Dates: start: 20210623, end: 20210706
  5. SERTRALINE [Suspect]
     Active Substance: SERTRALINE HYDROCHLORIDE
     Dosage: 50 MG/DAY
     Dates: start: 20210707, end: 20211109
  6. LEXAPRO [Concomitant]
     Active Substance: ESCITALOPRAM OXALATE
     Indication: Product used for unknown indication
     Dosage: 20 MG/DAY
     Dates: start: 20220127
  7. ETHYL LOFLAZEPATE [Concomitant]
     Active Substance: ETHYL LOFLAZEPATE
     Indication: Product used for unknown indication
     Dosage: 1 MG/DAY
     Dates: start: 20220127
  8. DOMPERIDONE [Concomitant]
     Active Substance: DOMPERIDONE
     Indication: Product used for unknown indication
     Dosage: 3 MG/DAY
     Dates: start: 20230516
  9. BROMAZEPAM [Concomitant]
     Active Substance: BROMAZEPAM
     Indication: Product used for unknown indication
     Dosage: 10 MG/DAY
     Dates: start: 20240514

REACTIONS (1)
  - Glucose tolerance impaired [Recovering/Resolving]

NARRATIVE: CASE EVENT DATE: 20250715
